FAERS Safety Report 14172652 (Version 1)
Quarter: 2017Q4

REPORT INFORMATION
  Report Type: Spontaneous
  Country: GB (occurrence: GB)
  Receive Date: 20171109
  Receipt Date: 20171109
  Transmission Date: 20180321
  Serious: Yes (Other)
  Sender: FDA-Public Use
  Company Number: GB-CONCORDIA PHARMACEUTICALS INC.-GSH201511-015515

PATIENT
  Age: 67 Year
  Sex: Female
  Weight: 60 kg

DRUGS (13)
  1. ANUSOL NOS [Concomitant]
     Active Substance: BALSAM PERU\BENZYL BENZOATE\BISMUTH HYDROXIDE\BISMUTH SUBGALLATE\HYDROCORTISONE ACETATE\ZINC OXIDE
     Dates: start: 20150918, end: 20150928
  2. CLARITHROMYCIN. [Concomitant]
     Active Substance: CLARITHROMYCIN
     Dates: start: 20151029
  3. LIDOCAINE. [Concomitant]
     Active Substance: LIDOCAINE
     Dates: start: 20151029
  4. CITALOPRAM [Concomitant]
     Active Substance: CITALOPRAM HYDROBROMIDE
     Dates: start: 20150325
  5. OMEPRAZOLE. [Concomitant]
     Active Substance: OMEPRAZOLE
     Dates: start: 20150325
  6. SALBUTAMOL [Concomitant]
     Active Substance: ALBUTEROL
     Dosage: 1 -2 PUFFS FOUR TIMES A DAY
     Route: 055
     Dates: start: 20150325
  7. ATENOLOL. [Concomitant]
     Active Substance: ATENOLOL
     Dates: start: 20150325
  8. SIMVASTATIN. [Concomitant]
     Active Substance: SIMVASTATIN
     Dosage: AT NIGHT
     Dates: start: 20150622
  9. ASPIRIN. [Concomitant]
     Active Substance: ASPIRIN
     Dates: start: 20141209
  10. CALCICHEW D3 [Concomitant]
     Active Substance: CALCIUM\CHOLECALCIFEROL
     Dates: start: 20150622
  11. SERETIDE [Concomitant]
     Active Substance: FLUTICASONE PROPIONATE\SALMETEROL XINAFOATE
     Route: 055
     Dates: start: 20151021
  12. TIOTROPIUM [Concomitant]
     Active Substance: TIOTROPIUM
     Dates: start: 20150325
  13. PREDNISOLONE. [Suspect]
     Active Substance: PREDNISOLONE
     Dates: start: 20151029

REACTIONS (4)
  - Tremor [Recovered/Resolved]
  - Insomnia [Unknown]
  - Gastrointestinal disorder [Unknown]
  - Hallucination [Recovered/Resolved]

NARRATIVE: CASE EVENT DATE: 20151102
